FAERS Safety Report 24397908 (Version 1)
Quarter: 2024Q4

REPORT INFORMATION
  Report Type: Spontaneous
  Country: US (occurrence: US)
  Receive Date: 20241004
  Receipt Date: 20241004
  Transmission Date: 20250115
  Serious: No
  Sender: PFIZER
  Company Number: US-PFIZER INC-202400268219

PATIENT
  Age: 77 Year
  Sex: Female

DRUGS (2)
  1. IBRANCE [Suspect]
     Active Substance: PALBOCICLIB
     Dosage: DAILY FOR 21 DAYS FOLLOWED BY 7 DAY BREAK
  2. EXEMESTANE [Suspect]
     Active Substance: EXEMESTANE
     Dosage: UNK

REACTIONS (1)
  - Bone disorder [Unknown]
